FAERS Safety Report 22243394 (Version 1)
Quarter: 2023Q2

REPORT INFORMATION
  Report Type: Spontaneous
  Country: US (occurrence: None)
  Receive Date: 20230420
  Receipt Date: 20230420
  Transmission Date: 20230721
  Serious: No
  Sender: FDA-Public Use
  Company Number: None

PATIENT
  Age: 72 Year
  Sex: Male
  Weight: 61.19 kg

DRUGS (10)
  1. IMATINIB [Suspect]
     Active Substance: IMATINIB
     Indication: Bone cancer
     Dosage: FREQUENCY : DAILY;?
     Route: 048
     Dates: start: 202303
  2. ASPIRIN [Concomitant]
     Active Substance: ASPIRIN
  3. AUGMENTIN [Concomitant]
  4. CELEBREX [Concomitant]
     Active Substance: CELECOXIB
  5. CITALOPRAM [Concomitant]
  6. GABAPENTIN [Concomitant]
     Active Substance: GABAPENTIN
  7. LOSARTAN [Concomitant]
  8. METHADONE [Concomitant]
  9. TYLENO [Concomitant]
  10. VITAMIN D2 [Concomitant]
     Active Substance: ERGOCALCIFEROL

REACTIONS (2)
  - Platelet count decreased [None]
  - Intentional dose omission [None]
